FAERS Safety Report 20589312 (Version 1)
Quarter: 2022Q1

REPORT INFORMATION
  Report Type: Spontaneous
  Country: SE (occurrence: SE)
  Receive Date: 20220314
  Receipt Date: 20220314
  Transmission Date: 20220423
  Serious: No
  Sender: FDA-Public Use
  Company Number: SE-PFIZER INC-202200304699

PATIENT
  Sex: Female

DRUGS (1)
  1. FILGRASTIM [Suspect]
     Active Substance: FILGRASTIM
     Dosage: 5X0.2 ML PRE-FILLED SYRINGES, 12 MU/0.2 ML

REACTIONS (1)
  - Device issue [Unknown]
